FAERS Safety Report 8520585-3 (Version None)
Quarter: 2012Q3

REPORT INFORMATION
  Report Type: 
  Country: None (occurrence: None)
  Receive Date: 20120719
  Receipt Date: 20120709
  Transmission Date: 20120928
  Serious: Yes (Other)
  Sender: FDA-Public Use
  Company Number: JP-VERTEX PHARMACEUTICALS INC.-AE-2012-003441

PATIENT
  Age: 68 Year
  Sex: Male

DRUGS (15)
  1. TELAVIC (TELAPREVIR) [Suspect]
     Route: 048
     Dates: start: 20120201, end: 20120228
  2. RIBAVIRIN [Concomitant]
     Indication: HEPATITIS C
     Route: 048
     Dates: start: 20120111, end: 20120124
  3. PEGINTERFERON ALFA-2A [Concomitant]
     Indication: HEPATITIS C
     Route: 058
     Dates: end: 20120222
  4. RIBAVIRIN [Concomitant]
     Route: 048
     Dates: start: 20120125, end: 20120131
  5. DEPAS [Concomitant]
     Route: 048
  6. TELAVIC (TELAPREVIR) [Suspect]
     Indication: HEPATITIS C
     Route: 048
     Dates: start: 20120111, end: 20120131
  7. LAMISIL [Concomitant]
     Route: 061
     Dates: start: 20120125
  8. DIOVAN [Concomitant]
     Route: 048
  9. PEGINTERFERON ALFA-2A [Concomitant]
     Route: 058
     Dates: start: 20120229, end: 20120321
  10. MUCOSTA [Concomitant]
     Route: 048
     Dates: start: 20120111, end: 20120328
  11. TELAVIC (TELAPREVIR) [Suspect]
     Route: 048
     Dates: start: 20120307, end: 20120324
  12. TELAVIC (TELAPREVIR) [Suspect]
     Route: 048
     Dates: start: 20120229, end: 20120306
  13. ADALAT CC [Concomitant]
     Route: 048
  14. RIBAVIRIN [Concomitant]
     Route: 048
     Dates: start: 20120201, end: 20120324
  15. ISOSORBIDE MONONITRATE [Concomitant]
     Route: 048

REACTIONS (2)
  - BLOOD CREATININE INCREASED [None]
  - RETINOPATHY [None]
